FAERS Safety Report 19281118 (Version 2)
Quarter: 2021Q2

REPORT INFORMATION
  Report Type: Other
  Country: US (occurrence: US)
  Receive Date: 20210521
  Receipt Date: 20210615
  Transmission Date: 20210717
  Serious: No
  Sender: FDA-Public Use
  Company Number: US-NEUROCRINE BIOSCIENCES INC.-2021NBI02329

PATIENT

DRUGS (32)
  1. PEPCID [Concomitant]
     Active Substance: FAMOTIDINE
     Dosage: 40 MILLIGRAM
  2. PROTONIX [Concomitant]
     Active Substance: PANTOPRAZOLE SODIUM
     Dosage: 40 MILLIGRAM, QD
  3. ELAVIL [Concomitant]
     Active Substance: AMITRIPTYLINE HYDROCHLORIDE
     Dosage: 25 MILLIGRAM NIGHTLY AT BEDTIME
     Route: 048
  4. FOLVITE [FOLIC ACID] [Concomitant]
     Dosage: 1 MILLIGRAM, QD
     Route: 048
  5. VITAMIN E?400 [Concomitant]
     Dosage: 400 UNITED STATES PHARMACOPEIA UNIT, QD
     Route: 048
  6. AMBIEN [Concomitant]
     Active Substance: ZOLPIDEM TARTRATE
     Indication: SLEEP DISORDER
     Dosage: 5 MILLIGRAM NIGHTLY AT BEDTIME AS NEEDED FOR SLEEP UPTO 30 DAYS
     Route: 048
  7. INGREZZA [Suspect]
     Active Substance: VALBENAZINE
     Indication: TARDIVE DYSKINESIA
     Dosage: 80 MILLIGRAM, QD
     Route: 048
     Dates: end: 202105
  8. CALTRATE WITH VITAMIN D [Concomitant]
     Active Substance: CALCIUM CARBONATE\CHOLECALCIFEROL
     Dosage: 600 MILLIGRAM, BID
     Route: 048
  9. CHOLECALCIFEROL [Concomitant]
     Active Substance: CHOLECALCIFEROL
     Dosage: 25 MILLIGRAM TAKE 1000 UNITS
     Route: 048
  10. NEURONTIN [Concomitant]
     Active Substance: GABAPENTIN
     Dosage: 300 MILLIGRAM, TID
     Route: 048
  11. MYCOSTATIN [Concomitant]
     Active Substance: NYSTATIN
     Dosage: 100000 UNIT/GRAM 3 TIMES DAILY
     Route: 061
  12. N?ACETYL?L?CYSTEINE [Concomitant]
     Active Substance: ACETYLCYSTEINE
     Dosage: 500 MILLIGRAM, QD
     Route: 048
  13. CELEBREX [Concomitant]
     Active Substance: CELECOXIB
     Dosage: 100 MILLIGRAM, BID
     Route: 048
  14. MAG?OX [Concomitant]
     Active Substance: MAGNESIUM OXIDE
     Dosage: 400 MILLIGRAM, QD
     Route: 048
  15. GLUCOPHAGE [Concomitant]
     Active Substance: METFORMIN HYDROCHLORIDE
     Dosage: 500 MILLIGRAM, QD WITH BREAKFAST FOR 180 DAYS
     Route: 048
  16. OMEGA 3 DHA [ASCORBIC ACID;ERGOCALCIFEROL;FISH OIL;LINUM USITATISSIMUM [Concomitant]
     Dosage: 1000 MILLIGRAM, QD
     Route: 048
  17. AFRIN [Concomitant]
     Active Substance: OXYMETAZOLINE
     Dosage: PLACE INTO NOSTRILS
     Route: 045
  18. ZOCOR [Concomitant]
     Active Substance: SIMVASTATIN
     Dosage: 20 MILLIGRAM EVERY NIGHT AT BEDTIME
     Route: 048
  19. TYLENOL EXTRA STRENGTH [Concomitant]
     Active Substance: ACETAMINOPHEN
     Indication: PAIN
     Dosage: 1000 MILLIGRAM AS NEEDED
     Route: 048
  20. GINKO BILOBA [GINKGO BILOBA LEAF] [Concomitant]
     Dosage: 120 MILLIGRAM, QD
     Route: 048
  21. ATARAX [Concomitant]
     Active Substance: HYDROXYZINE HYDROCHLORIDE
     Indication: ANXIETY
     Dosage: 25 MILLIGRAM 4 TIMES DAILY AND THEN  ONCE PER DAY AS NEEDED
     Route: 048
  22. MIRAPEX [Concomitant]
     Active Substance: PRAMIPEXOLE DIHYDROCHLORIDE
     Dosage: 0.125 MILLIGRAM, TID
     Route: 048
  23. SYNTHROID [Concomitant]
     Active Substance: LEVOTHYROXINE SODIUM
     Dosage: 150 MICROGRAM, QD
     Route: 048
  24. VOLTAREN [DICLOFENAC] [Concomitant]
     Active Substance: DICLOFENAC SODIUM
     Dosage: 2 GRAM, BID TO MOST PAINFUL AREA
     Route: 061
  25. VITAMIN B6 [Concomitant]
     Active Substance: PYRIDOXINE HYDROCHLORIDE
     Dosage: 100 MILLIGRAM, QD
     Route: 048
  26. GLUCOSAMINE + CHONDORITIN [Concomitant]
     Dosage: 1500MCG/200MCG
  27. NORCO [Concomitant]
     Active Substance: ACETAMINOPHEN\HYDROCODONE BITARTRATE
     Indication: PAIN
     Dosage: 7.5?325 MG 1 TABLET EVERY 6 HOUR AS NEEDED
     Route: 048
  28. HYDROCORTISON [HYDROCORTISONE SODIUM PHOSPHATE] [Concomitant]
     Dosage: 2.5% CREAM APPLY TWICE DAILY
     Route: 061
  29. IBUPROFEN. [Concomitant]
     Active Substance: IBUPROFEN
     Indication: PAIN
     Dosage: 400 MILLIGRAM AS NEEDED
     Route: 048
  30. PAXIL [Concomitant]
     Active Substance: PAROXETINE HYDROCHLORIDE
     Dosage: 30 MILLIGRAM, QD
     Route: 048
  31. NEO?SYNEPHRINE [Concomitant]
     Active Substance: PHENYLEPHRINE HYDROCHLORIDE
     Dosage: PLACE INTO THE NOSTRILS
     Route: 045
  32. INDERAL [Concomitant]
     Active Substance: PROPRANOLOL HYDROCHLORIDE
     Dosage: 10 MILLIGRAM, BID, MAY TAKE ONE ADDITIONAL TABLET ONCE DAILY AS NEEDED
     Route: 048

REACTIONS (1)
  - Muscle twitching [Not Recovered/Not Resolved]
